FAERS Safety Report 7818052-5 (Version None)
Quarter: 2011Q4

REPORT INFORMATION
  Report Type: 
  Country: None (occurrence: None)
  Receive Date: 20111017
  Receipt Date: 20110421
  Transmission Date: 20120403
  Serious: Yes (Other)
  Sender: FDA-Public Use
  Company Number: US-B.I. PHARMACEUTICALS,INC./RIDGEFIELD-2011-BP-05799BP

PATIENT
  Sex: Female

DRUGS (8)
  1. PRADAXA [Suspect]
     Indication: ATRIAL FIBRILLATION
     Dosage: 300 MG
     Route: 048
     Dates: start: 20101201
  2. FOSAMAX [Concomitant]
  3. PRADAXA [Suspect]
     Indication: HEART RATE INCREASED
  4. LOTREL [Concomitant]
     Indication: HYPERTENSION
  5. XALATAN [Concomitant]
  6. PROPAFENONE HCL [Concomitant]
     Indication: ATRIAL FIBRILLATION
     Dates: start: 20101201, end: 20110101
  7. DILTIAZEM HCL [Concomitant]
  8. VYTORIN [Concomitant]
     Indication: BLOOD CHOLESTEROL INCREASED

REACTIONS (5)
  - EPISTAXIS [None]
  - BLADDER NEOPLASM [None]
  - ARTHRALGIA [None]
  - OESOPHAGEAL PAIN [None]
  - HAEMATOCHEZIA [None]
